FAERS Safety Report 19932859 (Version 1)
Quarter: 2021Q4

REPORT INFORMATION
  Report Type: Spontaneous
  Country: US (occurrence: US)
  Receive Date: 20211006
  Receipt Date: 20211006
  Transmission Date: 20220304
  Serious: No
  Sender: FDA-Public Use
  Company Number: None

PATIENT

DRUGS (2)
  1. VITAMIN B12 [Suspect]
     Active Substance: CYANOCOBALAMIN
  2. VITAMIN B1 [Suspect]
     Active Substance: THIAMINE HYDROCHLORIDE

REACTIONS (1)
  - Transcription medication error [None]
